FAERS Safety Report 6927796-9 (Version None)
Quarter: 2010Q3

REPORT INFORMATION
  Report Type: 
  Country: None (occurrence: None)
  Receive Date: 20100817
  Receipt Date: 20100805
  Transmission Date: 20110219
  Serious: Yes (Hospitalization, Other)
  Sender: FDA-Public Use
  Company Number: AU-PFIZER INC-2010099400

PATIENT
  Age: 26 Year
  Sex: Male

DRUGS (2)
  1. CHAMPIX [Suspect]
     Dosage: UNK
  2. ALCOHOL [Interacting]
     Dosage: UNK

REACTIONS (7)
  - ABNORMAL BEHAVIOUR [None]
  - ALCOHOL USE [None]
  - AMNESIA [None]
  - CRYING [None]
  - DRUG INTERACTION [None]
  - ROAD TRAFFIC ACCIDENT [None]
  - SUICIDAL IDEATION [None]
